FAERS Safety Report 14314106 (Version 1)
Quarter: 2017Q4

REPORT INFORMATION
  Report Type: Spontaneous
  Country: US (occurrence: US)
  Receive Date: 20171220
  Receipt Date: 20171220
  Transmission Date: 20180321
  Serious: Yes (Other)
  Sender: FDA-Public Use
  Company Number: None

PATIENT
  Age: 63 Year
  Sex: Female

DRUGS (1)
  1. CAPECITABINE. [Suspect]
     Active Substance: CAPECITABINE
     Indication: METASTATIC NEOPLASM
     Dosage: 1500MG TWICE DAILY FOR 14 DAYS ON, 7 DAYS OFF ORAL
     Route: 048
     Dates: start: 201702

REACTIONS (2)
  - Skin haemorrhage [None]
  - Skin fissures [None]

NARRATIVE: CASE EVENT DATE: 20171128
